FAERS Safety Report 6131610-1 (Version None)
Quarter: 2009Q1

REPORT INFORMATION
  Report Type: 
  Country: None (occurrence: None)
  Receive Date: 20090325
  Receipt Date: 20081120
  Transmission Date: 20090719
  Serious: Yes (Other)
  Sender: FDA-Public Use
  Company Number: US-BRISTOL-MYERS SQUIBB COMPANY-14415558

PATIENT
  Age: 62 Year
  Sex: Male

DRUGS (3)
  1. ERBITUX [Suspect]
     Indication: SQUAMOUS CELL CARCINOMA
     Dates: start: 20081009
  2. RADIATION THERAPY [Concomitant]
  3. DECADRON [Concomitant]
     Indication: PREMEDICATION

REACTIONS (1)
  - INFUSION RELATED REACTION [None]
